FAERS Safety Report 4998744-6 (Version None)
Quarter: 2006Q2

REPORT INFORMATION
  Report Type: 
  Country: None (occurrence: None)
  Receive Date: 20060508
  Receipt Date: 20060425
  Transmission Date: 20061013
  Serious: Yes (Hospitalization, Other)
  Sender: FDA-Public Use
  Company Number: URSO-2005-041

PATIENT
  Age: 82 Year
  Sex: Female

DRUGS (17)
  1. URSO 250 [Suspect]
     Indication: BILIARY CIRRHOSIS
     Dosage: 600 MG
     Route: 048
     Dates: start: 20010721
  2. OMEPRAZOLE [Concomitant]
  3. GASMOTIN (MOSAPRIDE CITRATE) [Concomitant]
  4. ALLOID G     (SODIUM ALGINATE) [Concomitant]
  5. FERROMIA    (SODIUM FERROUS CITRATE) [Concomitant]
  6. POSTERISAN        (COLI-ANTIGEN, HYDROCORTISONE) [Concomitant]
  7. AMORBAN             (ZOPICLONE) [Concomitant]
  8. NORVASC [Concomitant]
  9. EVOXAC         (CEVEMILINE HYDROCHLORIDE HYDRATE) [Concomitant]
  10. LOSARTAN POTASSIUM [Concomitant]
  11. LIVACT           (ISOLEUCINE, LEUCINE, VALINE) [Concomitant]
  12. DEXALTIN  (DEXAMETHASONE) [Concomitant]
  13. LEVOFLOXACIN [Concomitant]
  14. SP            (DEQUALINIUM CHLORIDE) [Concomitant]
  15. ANDERM            (BUFEXAMAC) [Concomitant]
  16. AZUNOL           (AZULENE) [Concomitant]
  17. MUCODYNE     (CARBOCISTEINE) [Concomitant]

REACTIONS (7)
  - DISEASE PROGRESSION [None]
  - HAEMORRHOIDAL HAEMORRHAGE [None]
  - HEPATIC LESION [None]
  - IRON DEFICIENCY ANAEMIA [None]
  - OESOPHAGEAL VARICES HAEMORRHAGE [None]
  - REFLUX OESOPHAGITIS [None]
  - RENAL DISORDER [None]
